FAERS Safety Report 21568135 (Version 1)
Quarter: 2022Q4

REPORT INFORMATION
  Report Type: Report from Study
  Country: US (occurrence: US)
  Receive Date: 20221108
  Receipt Date: 20221108
  Transmission Date: 20230113
  Serious: Yes (Other)
  Sender: FDA-Public Use
  Company Number: US-TEVA-2022-US-2823617

PATIENT
  Age: 23 Year
  Sex: Female

DRUGS (1)
  1. CLARAVIS [Suspect]
     Active Substance: ISOTRETINOIN
     Indication: Product used for unknown indication
     Route: 065
     Dates: start: 20220906

REACTIONS (4)
  - Depression [Unknown]
  - Suicidal ideation [Unknown]
  - Eating disorder [Unknown]
  - Crying [Unknown]

NARRATIVE: CASE EVENT DATE: 20221001
